FAERS Safety Report 7419162-7 (Version None)
Quarter: 2011Q2

REPORT INFORMATION
  Report Type: 
  Country: None (occurrence: None)
  Receive Date: 20110415
  Receipt Date: 20110407
  Transmission Date: 20111010
  Serious: Yes (Death, Other)
  Sender: FDA-Public Use
  Company Number: US-AMGEN-USACT2011018622

PATIENT

DRUGS (12)
  1. METHOTREXATE [Suspect]
     Indication: BURKITT'S LYMPHOMA
     Dosage: UNK
     Route: 065
  2. CYCLOPHOSPHAMIDE [Suspect]
     Indication: BURKITT'S LYMPHOMA
     Dosage: 200 MG/M2, UNK
     Route: 042
  3. VINCRISTINE [Suspect]
     Indication: BURKITT'S LYMPHOMA
     Dosage: 2 MG, UNK
     Route: 065
  4. DEXAMETHASONE [Suspect]
     Indication: BURKITT'S LYMPHOMA
     Dosage: 10 MG/M2, UNK
     Route: 065
  5. VP-16 [Suspect]
     Indication: BURKITT'S LYMPHOMA
     Dosage: 80 MG/M2, UNK
     Route: 065
  6. DOXORUBICIN [Suspect]
     Indication: BURKITT'S LYMPHOMA
     Dosage: 25 MG/M2, UNK
     Route: 065
  7. FILGRASTIM [Suspect]
     Indication: BURKITT'S LYMPHOMA
  8. PREDNISONE [Suspect]
     Indication: BURKITT'S LYMPHOMA
     Dosage: 60 MG/M2, UNK
     Route: 065
  9. CYTARABINE [Suspect]
     Indication: BURKITT'S LYMPHOMA
     Route: 065
  10. RITUXIMAB [Suspect]
     Indication: BURKITT'S LYMPHOMA
     Route: 065
  11. FOLINIC ACID [Suspect]
     Indication: BURKITT'S LYMPHOMA
     Route: 065
  12. IFOSFAMIDE [Suspect]
     Indication: BURKITT'S LYMPHOMA
     Dosage: 800 MG/M2, UNK
     Route: 065

REACTIONS (16)
  - VOMITING [None]
  - RASH [None]
  - DYSPNOEA [None]
  - INFECTION [None]
  - GASTROINTESTINAL TOXICITY [None]
  - HAEMORRHAGIC STROKE [None]
  - STOMATITIS [None]
  - FATIGUE [None]
  - DIARRHOEA [None]
  - RESPIRATORY FAILURE [None]
  - HAEMATOTOXICITY [None]
  - ERYTHEMA MULTIFORME [None]
  - NAUSEA [None]
  - PULMONARY HAEMORRHAGE [None]
  - NERVOUS SYSTEM DISORDER [None]
  - TUMOUR LYSIS SYNDROME [None]
